FAERS Safety Report 6053550-9 (Version None)
Quarter: 2009Q1

REPORT INFORMATION
  Report Type: 
  Country: None (occurrence: None)
  Receive Date: 20090127
  Receipt Date: 20080806
  Transmission Date: 20090719
  Serious: No
  Sender: FDA-Public Use
  Company Number: US-TEVA-176185USA

PATIENT
  Sex: Female

DRUGS (3)
  1. COPAXONE [Suspect]
     Indication: MULTIPLE SCLEROSIS
     Route: 058
     Dates: start: 20080426
  2. ZOLPIDEM TARTRATE [Concomitant]
  3. PREGABALIN [Concomitant]

REACTIONS (3)
  - CHEST DISCOMFORT [None]
  - DYSGEUSIA [None]
  - FLUSHING [None]
